FAERS Safety Report 5873816-2 (Version None)
Quarter: 2008Q3

REPORT INFORMATION
  Report Type: 
  Country: None (occurrence: None)
  Receive Date: 20080903
  Receipt Date: 20080903
  Transmission Date: 20090109
  Serious: No
  Sender: FDA-Public Use
  Company Number: None

PATIENT
  Age: 69 Year
  Sex: Female
  Weight: 79.3795 kg

DRUGS (1)
  1. AMLODIPINE [Suspect]
     Indication: BLOOD PRESSURE SYSTOLIC INCREASED
     Dosage: 1 TABLET IN PM ONCE DAILY PO, 8 MONTHS OR LESS
     Route: 048
     Dates: start: 20080201, end: 20080902

REACTIONS (4)
  - BLISTER [None]
  - DIZZINESS [None]
  - HEADACHE [None]
  - PHOTOSENSITIVITY REACTION [None]
